FAERS Safety Report 5859672-7 (Version None)
Quarter: 2008Q3

REPORT INFORMATION
  Report Type: 
  Country: None (occurrence: None)
  Receive Date: 20080827
  Receipt Date: 20080818
  Transmission Date: 20090109
  Serious: Yes (Hospitalization)
  Sender: FDA-Public Use
  Company Number: DK-WATSON-2008-04957

PATIENT
  Age: 18 Month
  Sex: Female
  Weight: 12 kg

DRUGS (1)
  1. INFED [Suspect]
     Indication: ACCIDENTAL EXPOSURE
     Dosage: 442 MG FE+2 / KG
     Route: 048
     Dates: start: 20070101, end: 20070101

REACTIONS (2)
  - DRUG TOXICITY [None]
  - METABOLIC ACIDOSIS [None]
